FAERS Safety Report 7828191-0 (Version None)
Quarter: 2011Q4

REPORT INFORMATION
  Report Type: 
  Country: None (occurrence: None)
  Receive Date: 20111020
  Receipt Date: 20111006
  Transmission Date: 20120403
  Serious: Yes (Disabling)
  Sender: FDA-Public Use
  Company Number: US-ELI_LILLY_AND_COMPANY-US201110001884

PATIENT
  Sex: Female

DRUGS (7)
  1. VITAMIN D [Concomitant]
     Dosage: UNK, QD
  2. FORTEO [Suspect]
     Indication: OSTEOPOROSIS
     Dosage: 20 UG, QD
     Route: 065
     Dates: start: 20110908
  3. FISH OIL [Concomitant]
     Dosage: UNK, QD
  4. CALCIUM CARBONATE [Concomitant]
     Dosage: UNK, QD
  5. VITAMIN E                            /001105/ [Concomitant]
     Dosage: UNK, QD
  6. MULTI-VITAMIN [Concomitant]
     Dosage: UNK, QD
  7. EVISTA [Concomitant]
     Indication: PROPHYLAXIS
     Dosage: 60 MG, QD
     Dates: start: 20100101

REACTIONS (3)
  - DISABILITY [None]
  - INJECTION SITE HAEMATOMA [None]
  - BACK PAIN [None]
